FAERS Safety Report 9752521 (Version 1)
Quarter: 2013Q4

REPORT INFORMATION
  Report Type: Spontaneous
  Country: US (occurrence: None)
  Receive Date: 20131212
  Receipt Date: 20131212
  Transmission Date: 20140711
  Serious: No
  Sender: FDA-Public Use
  Company Number: None

PATIENT
  Age: 60 Year
  Sex: Male
  Weight: 83.92 kg

DRUGS (3)
  1. ATORVASTATIN CALCIUM [Suspect]
     Indication: BLOOD CHOLESTEROL INCREASED
     Route: 048
     Dates: start: 20131015, end: 20131117
  2. MOVE FREE [Concomitant]
  3. VIT E [Concomitant]

REACTIONS (4)
  - Pain [None]
  - Asthenia [None]
  - Abdominal pain upper [None]
  - Chromaturia [None]
